FAERS Safety Report 10300252 (Version 2)
Quarter: 2014Q3

REPORT INFORMATION
  Report Type: Report from Study
  Country: CA (occurrence: CA)
  Receive Date: 20140711
  Receipt Date: 20140711
  Transmission Date: 20150326
  Serious: Yes (Hospitalization, Other)
  Sender: FDA-Public Use
  Company Number: CA-ALEXION-A201400201

PATIENT
  Age: 6 Year
  Sex: Female
  Weight: 15 kg

DRUGS (11)
  1. SOLIRIS [Suspect]
     Active Substance: ECULIZUMAB
     Dosage: 300 MG, SINGLE
     Route: 042
     Dates: start: 20130131
  2. SOLIRIS [Suspect]
     Active Substance: ECULIZUMAB
     Dosage: 900 MG, Q2W
     Route: 042
     Dates: start: 20130315, end: 20130523
  3. PREDNISOLONE. [Concomitant]
     Active Substance: PREDNISOLONE
     Indication: AUTOIMMUNE DISORDER
     Dosage: 5 ML, QD
     Route: 048
     Dates: start: 201301
  4. SOLIRIS [Suspect]
     Active Substance: ECULIZUMAB
     Dosage: 300 MG, Q2W
     Route: 042
     Dates: start: 20130606, end: 20140102
  5. CELLCEPT [Concomitant]
     Active Substance: MYCOPHENOLATE MOFETIL\MYCOPHENOLATE MOFETIL HYDROCHLORIDE
     Indication: PROPHYLAXIS
     Dosage: 1.8 ML, BID
     Route: 048
     Dates: start: 201301
  6. CALCIA, VITAMIN D [Concomitant]
     Indication: SUPPLEMENTATION THERAPY
     Dosage: 40 IU, QD
     Route: 048
     Dates: start: 201301
  7. SOLIRIS [Suspect]
     Active Substance: ECULIZUMAB
     Indication: HAEMOLYTIC URAEMIC SYNDROME
     Dosage: 600 MG, QW
     Route: 042
     Dates: start: 20130111, end: 20130117
  8. AMOXICILLIN. [Concomitant]
     Active Substance: AMOXICILLIN
     Indication: PROPHYLAXIS
     Dosage: 6 ML, BID
     Route: 048
     Dates: start: 201301
  9. RITALIN [Concomitant]
     Active Substance: METHYLPHENIDATE HYDROCHLORIDE
     Indication: PSYCHOMOTOR HYPERACTIVITY
     Dosage: 10 MG, BID
     Route: 048
     Dates: start: 201308
  10. SOLIRIS [Suspect]
     Active Substance: ECULIZUMAB
     Dosage: 300 MG, Q3W
     Route: 042
     Dates: start: 20140123
  11. SOLIRIS [Suspect]
     Active Substance: ECULIZUMAB
     Dosage: 600 MG, Q2W
     Route: 042
     Dates: start: 20130215, end: 20130301

REACTIONS (2)
  - Failure to thrive [Not Recovered/Not Resolved]
  - Gastritis [Recovered/Resolved]

NARRATIVE: CASE EVENT DATE: 2014
